FAERS Safety Report 4389320-7 (Version None)
Quarter: 2004Q3

REPORT INFORMATION
  Report Type: 
  Country: None (occurrence: None)
  Receive Date: 20040702
  Receipt Date: 20040622
  Transmission Date: 20050211
  Serious: Yes (Life-Threatening, Hospitalization)
  Sender: FDA-Public Use
  Company Number: DK-ROCHE-371799

PATIENT
  Age: 41 Year
  Sex: Female
  Weight: 105 kg

DRUGS (1)
  1. BONDRONAT [Suspect]
     Route: 048
     Dates: start: 20040511, end: 20040520

REACTIONS (1)
  - HYPOCALCAEMIA [None]
